FAERS Safety Report 6244013-6 (Version None)
Quarter: 2009Q2

REPORT INFORMATION
  Report Type: 
  Country: None (occurrence: None)
  Receive Date: 20090623
  Receipt Date: 20090612
  Transmission Date: 20091009
  Serious: Yes (Death, Hospitalization)
  Sender: FDA-Public Use
  Company Number: 2009-02236

PATIENT
  Age: 66 Year
  Sex: Male

DRUGS (15)
  1. VELCADE [Suspect]
     Indication: MULTIPLE MYELOMA
     Dosage: 2.9 MG, INTRAVENOUS
     Route: 042
     Dates: start: 20090522, end: 20090529
  2. CNT0328(CNT0328) VIAL [Suspect]
     Indication: MULTIPLE MYELOMA
     Dosage: INTRAVENOUS
     Route: 042
     Dates: start: 20090522, end: 20090522
  3. PLACEBO() [Suspect]
     Indication: MULTIPLE MYELOMA
     Dosage: INTRAVENOUS
     Route: 042
     Dates: start: 20090522, end: 20090522
  4. DEXAMETHASONE [Suspect]
     Indication: MULTIPLE MYELOMA
  5. ASPIRIN [Concomitant]
  6. ALLOPURINOL [Concomitant]
  7. BETAXOLOL [Concomitant]
  8. DARBEPOETIAN ALFA (DARBEPOETIN ALFA) [Concomitant]
  9. ESCITALOPRAM [Concomitant]
  10. OMEPRAZOLE [Concomitant]
  11. QUINAPRIL AND HYDROCHLOROTHIAZIDE (HYDROCHLOROTHIAZIDE, QUINAPRIL, HYD [Concomitant]
  12. VALACYCLOVIR [Concomitant]
  13. VALSARTAN [Concomitant]
  14. METFORMIN HCL [Concomitant]
  15. FILGRASTIM [Concomitant]

REACTIONS (3)
  - FEBRILE NEUTROPENIA [None]
  - NO THERAPEUTIC RESPONSE [None]
  - SEPTIC SHOCK [None]
